FAERS Safety Report 4682968-1 (Version None)
Quarter: 2005Q2

REPORT INFORMATION
  Report Type: 
  Country: None (occurrence: None)
  Receive Date: 20050602
  Receipt Date: 20050208
  Transmission Date: 20051028
  Serious: No
  Sender: FDA-Public Use
  Company Number: USA050290274

PATIENT
  Sex: Male

DRUGS (2)
  1. PROZAC [Suspect]
     Indication: DEPRESSION
  2. CYMBALTA [Suspect]
     Indication: DEPRESSION
     Dosage: 30 MG
     Dates: start: 20050204

REACTIONS (5)
  - DECREASED APPETITE [None]
  - NAUSEA [None]
  - NERVOUSNESS [None]
  - SEXUAL DYSFUNCTION [None]
  - TREMOR [None]
